FAERS Safety Report 16986043 (Version 1)
Quarter: 2019Q4

REPORT INFORMATION
  Report Type: Spontaneous
  Country: US (occurrence: US)
  Receive Date: 20190918
  Receipt Date: 20190918
  Transmission Date: 20200122
  Serious: No
  Sender: FDA-Public Use
  Company Number: None

PATIENT

DRUGS (12)
  1. OMEPRAZOLE. [Concomitant]
     Active Substance: OMEPRAZOLE
  2. PROLIA [Suspect]
     Active Substance: DENOSUMAB
     Dosage: ?          OTHER FREQUENCY:EVERY6MONTHS;?
     Route: 058
     Dates: start: 20171227
  3. AZITHROMYCIN ANHYDROUS. [Concomitant]
     Active Substance: AZITHROMYCIN ANHYDROUS
  4. CHLORINEX [Concomitant]
  5. PREDNISONE. [Concomitant]
     Active Substance: PREDNISONE
  6. SPIRLYA [Concomitant]
  7. SYMBICORT [Concomitant]
     Active Substance: BUDESONIDE\FORMOTEROL FUMARATE DIHYDRATE
  8. MELOXICAM. [Concomitant]
     Active Substance: MELOXICAM
  9. MORPHINE [Concomitant]
     Active Substance: MORPHINE
  10. IBUPROFEN. [Concomitant]
     Active Substance: IBUPROFEN
  11. GABAPENTIN. [Concomitant]
     Active Substance: GABAPENTIN
  12. TUDORZA PRES AER [Concomitant]

REACTIONS (2)
  - Dyspnoea [None]
  - Pulmonary congestion [None]
